FAERS Safety Report 9139113 (Version 1)
Quarter: 2013Q1

REPORT INFORMATION
  Report Type: Spontaneous
  Country: BR (occurrence: BR)
  Receive Date: 20130305
  Receipt Date: 20130305
  Transmission Date: 20140127
  Serious: Yes (Hospitalization)
  Sender: FDA-Public Use
  Company Number: BR-MYLANLABS-2013S1004110

PATIENT
  Age: 45 Year
  Sex: Female

DRUGS (5)
  1. CLONAZEPAM [Suspect]
     Indication: INTENTIONAL OVERDOSE
     Route: 048
  2. PROMETHAZINE [Suspect]
     Indication: INTENTIONAL OVERDOSE
     Route: 048
  3. OXCARBAZEPINE [Suspect]
     Indication: INTENTIONAL OVERDOSE
     Route: 048
  4. QUETIAPINE [Suspect]
     Indication: INTENTIONAL OVERDOSE
     Route: 048
  5. PHENOBARBITAL [Suspect]
     Indication: INTENTIONAL OVERDOSE
     Route: 048

REACTIONS (6)
  - Intentional overdose [Recovered/Resolved]
  - Toxicity to various agents [Recovered/Resolved]
  - Toxicity to various agents [Recovered/Resolved]
  - Coma blister [Recovered/Resolved]
  - Coma [Recovered/Resolved]
  - Skin necrosis [Recovered/Resolved]
